FAERS Safety Report 8548443 (Version 3)
Quarter: 2013Q1

REPORT INFORMATION
  Report Type: Spontaneous
  Country: US (occurrence: US)
  Receive Date: 20120507
  Receipt Date: 20130219
  Transmission Date: 20140127
  Serious: Yes (Hospitalization, Other)
  Sender: FDA-Public Use
  Company Number: US-BAYER-2012-043052

PATIENT
  Age: 37 Year
  Sex: Female
  Weight: 77 kg

DRUGS (20)
  1. YAZ [Suspect]
     Indication: OVARIAN CYST
     Dosage: UNK
     Dates: start: 20090129, end: 20091220
  2. YAZ [Suspect]
     Indication: PREMENSTRUAL SYNDROME
  3. YAZ [Suspect]
     Indication: ACNE
  4. LITHIUM [Concomitant]
     Indication: BIPOLAR DISORDER
  5. KLONOPIN [Concomitant]
     Indication: ANXIETY
  6. CIPROFLOXACIN [Concomitant]
     Dosage: 500 MG, BID
     Route: 048
  7. CITALOPRAM [Concomitant]
     Indication: DEPRESSION
     Dosage: 20 MG, AT BEDTIME
     Route: 048
  8. LAMOTRIGINE [Concomitant]
     Dosage: 150 MG, BID
     Route: 048
  9. LEVOTHYROXINE [Concomitant]
     Indication: HYPOTHYROIDISM
     Dosage: 0.075 MG, ONCE MORNING
     Route: 048
  10. OXYCODONE W/PARACETAMOL [Concomitant]
     Indication: PAIN
     Dosage: 5MG/325MG P.R.N., Q4HR
     Route: 048
  11. PREGABALIN [Concomitant]
     Dosage: 75 MG, BEDTIME
     Route: 048
  12. ZOLPIDEM [Concomitant]
     Indication: SLEEP DISORDER THERAPY
     Dosage: 10 MG, BEDTIME
     Route: 048
  13. LISINOPRILHYDROCHLOROTHIAZIDE RATIOPHARM [Concomitant]
     Dosage: 20/25MG Q.A.M.
     Route: 048
  14. INSULIN [INSULIN] [Concomitant]
     Indication: DIABETES MELLITUS
     Dosage: UNK
     Route: 048
  15. FLAGYL [Concomitant]
  16. NEURONTIN [Concomitant]
     Dosage: 300 MG, UNK
  17. DURAGESIC [Concomitant]
     Dosage: 50 UNK, 50MCG PER HOUR
  18. HUMALOG [Concomitant]
  19. COZAAR [Concomitant]
     Dosage: UNK
     Dates: start: 2009
  20. NSAID^S [Concomitant]

REACTIONS (10)
  - Pulmonary embolism [Recovered/Resolved]
  - Cholecystitis chronic [None]
  - Gallbladder injury [None]
  - Atelectasis [None]
  - Injury [None]
  - Pain [None]
  - Pleurisy [Recovered/Resolved]
  - Pleural effusion [Recovered/Resolved]
  - Nausea [Recovered/Resolved]
  - Abdominal pain [Recovered/Resolved]
